FAERS Safety Report 16534341 (Version 1)
Quarter: 2019Q3

REPORT INFORMATION
  Report Type: Spontaneous
  Country: US (occurrence: US)
  Receive Date: 20190705
  Receipt Date: 20190705
  Transmission Date: 20191004
  Serious: Yes (Hospitalization, Other)
  Sender: FDA-Public Use
  Company Number: US-GLAXOSMITHKLINE-US2019120312

PATIENT
  Age: 88 Year
  Sex: Female

DRUGS (3)
  1. COREG [Suspect]
     Active Substance: CARVEDILOL
     Indication: PRODUCT USED FOR UNKNOWN INDICATION
     Dosage: 12.5 MG, UNK
     Route: 065
  2. COREG [Suspect]
     Active Substance: CARVEDILOL
     Dosage: 12.5 MG, UNK
     Route: 065
     Dates: start: 201906
  3. ATENOLOL. [Concomitant]
     Active Substance: ATENOLOL
     Indication: PRODUCT USED FOR UNKNOWN INDICATION
     Dosage: UNK
     Route: 065
     Dates: start: 201906

REACTIONS (3)
  - Product dose omission [Unknown]
  - Product availability issue [Unknown]
  - Cellulitis [Unknown]
